FAERS Safety Report 9523472 (Version 2)
Quarter: 2013Q4

REPORT INFORMATION
  Report Type: Spontaneous
  Country: GB (occurrence: GB)
  Receive Date: 20130913
  Receipt Date: 20131129
  Transmission Date: 20140711
  Serious: Yes (Death, Hospitalization, Other)
  Sender: FDA-Public Use
  Company Number: PHHY2013GB099328

PATIENT
  Age: 54 Year
  Sex: Female

DRUGS (20)
  1. MEROPENEM [Suspect]
     Indication: CELLULITIS
     Dosage: 2 G, BID
     Route: 042
     Dates: start: 20130812
  2. MEROPENEM [Suspect]
     Dosage: 1 G, BID
     Route: 042
     Dates: start: 20130819, end: 20130820
  3. FRAGMIN [Concomitant]
     Indication: THROMBOSIS PROPHYLAXIS
     Dosage: 5000 IU, BID (5000UNITS/0.2ML)
     Route: 058
     Dates: start: 20130803, end: 20130820
  4. GLICLAZIDE [Concomitant]
     Indication: TYPE 2 DIABETES MELLITUS
     Dosage: 160 MG, BID
     Route: 048
     Dates: end: 20130808
  5. SIMVASTATIN [Concomitant]
     Dosage: 40 MG QD, AT NIGHT
     Route: 048
     Dates: end: 20130820
  6. METFORMIN [Concomitant]
     Indication: TYPE 2 DIABETES MELLITUS
     Dosage: 500 MG, BID
     Route: 048
     Dates: start: 20130810
  7. METFORMIN [Concomitant]
     Dosage: 850 MG BID
     Route: 048
     Dates: end: 20130820
  8. RAMIPRIL [Concomitant]
     Indication: HYPERTENSION
     Dosage: 10 MG, QD
     Route: 048
     Dates: end: 20130819
  9. LEVOTHYROXINE SODIUM [Concomitant]
     Indication: HYPOTHYROIDISM
     Dosage: 100 UG, QD IN THE MORNING
     Route: 048
     Dates: end: 20130821
  10. DALACIN C//CLINDAMYCIN PALMITATE HYDROCHLORIDE [Concomitant]
     Indication: CELLULITIS
     Dosage: 1.2 G, QID
     Route: 042
     Dates: start: 20130803, end: 20130812
  11. PARACETAMOL [Concomitant]
     Indication: PAIN
     Dosage: 1 G QID
     Route: 048
  12. GENTICIN [Concomitant]
     Indication: CELLULITIS
     Dosage: 360 MG (IMMEDIATELY)
     Route: 041
     Dates: start: 20130802, end: 20130805
  13. VANCOMYCIN [Concomitant]
     Indication: CELLULITIS
     Dosage: 1 G QD (DOSE ONLY GIVEN IF LEVELS CONFIRMED, SO NOT GIVEN EVERY DAY)
     Route: 041
     Dates: start: 20130805, end: 20130811
  14. HUMULIN I [Concomitant]
     Indication: TYPE 2 DIABETES MELLITUS
     Dosage: UNK (VARIABLE DOSE)
     Route: 058
     Dates: end: 20130819
  15. HUMULIN S [Concomitant]
     Indication: TYPE 2 DIABETES MELLITUS
     Dosage: UNK (VARIABLE DOSE)
     Route: 058
     Dates: end: 20130819
  16. CALCIUM RESONIUM [Concomitant]
     Indication: HYPERKALAEMIA
     Dosage: 15 G QID
     Route: 048
     Dates: start: 20130812, end: 20130821
  17. CODEINE [Concomitant]
     Indication: PAIN
     Dosage: 60 MG QID
     Route: 048
     Dates: start: 20130816, end: 20130819
  18. FUROSEMIDE [Concomitant]
     Dosage: 40 MG, BID
     Route: 048
     Dates: end: 20130808
  19. FUROSEMIDE [Concomitant]
     Dosage: UNK (DOSE INCREASED STEADILY)
     Route: 042
     Dates: start: 20130812, end: 20130822
  20. FUROSEMIDE [Concomitant]
     Dosage: 250 MG, BID
     Route: 042

REACTIONS (5)
  - Renal failure acute [Fatal]
  - Tubulointerstitial nephritis [Not Recovered/Not Resolved]
  - Glomerular filtration rate decreased [Not Recovered/Not Resolved]
  - Blood creatinine increased [Not Recovered/Not Resolved]
  - Drug hypersensitivity [Unknown]
